FAERS Safety Report 9707493 (Version 28)
Quarter: 2022Q1

REPORT INFORMATION
  Report Type: Report from Study
  Country: CA (occurrence: CA)
  Receive Date: 20131125
  Receipt Date: 20220327
  Transmission Date: 20220424
  Serious: Yes (Death, Hospitalization, Other)
  Sender: FDA-Public Use
  Company Number: PHHY2009CA38662

PATIENT
  Age: 65 Year
  Sex: Female

DRUGS (4)
  1. SANDOSTATIN LAR DEPOT [Suspect]
     Active Substance: OCTREOTIDE ACETATE
     Indication: Acromegaly
     Dosage: 30 MG, QMO (ONCE A MONTH)
     Route: 030
     Dates: start: 19991201
  2. SANDOSTATIN LAR DEPOT [Suspect]
     Active Substance: OCTREOTIDE ACETATE
     Dosage: 40 MG, Q4W
     Route: 030
     Dates: start: 19991201
  3. SANDOSTATIN LAR DEPOT [Suspect]
     Active Substance: OCTREOTIDE ACETATE
     Dosage: 40 MG, QMO (EVERY 4 WEEKS)
     Route: 030
     Dates: start: 20140605
  4. SANDOSTATIN LAR DEPOT [Suspect]
     Active Substance: OCTREOTIDE ACETATE
     Dosage: 40 MG, QMO (ONCE A MONTH)
     Route: 030

REACTIONS (12)
  - Death [Fatal]
  - Intestinal perforation [Unknown]
  - Altered state of consciousness [Unknown]
  - Blood pressure diastolic decreased [Unknown]
  - Blood pressure systolic increased [Unknown]
  - Arrhythmia [Unknown]
  - Gait disturbance [Unknown]
  - Stress [Unknown]
  - Body temperature decreased [Unknown]
  - Blood pressure increased [Unknown]
  - Glomerular filtration rate increased [Unknown]
  - Dyspnoea [Unknown]

NARRATIVE: CASE EVENT DATE: 20131120
